FAERS Safety Report 4381922-7 (Version None)
Quarter: 2004Q2

REPORT INFORMATION
  Report Type: 
  Country: None (occurrence: None)
  Receive Date: 20040615
  Receipt Date: 20040603
  Transmission Date: 20050107
  Serious: Yes (Other)
  Sender: FDA-Public Use
  Company Number: AU-2004-026348

PATIENT
  Age: 39 Year
  Sex: Female

DRUGS (1)
  1. MIRENA [Suspect]
     Indication: CONTRACEPTION
     Dosage: 20 UG/DAY, CONT, INTRA UTERINE
     Route: 015
     Dates: start: 20040401, end: 20040531

REACTIONS (5)
  - DIPLOPIA [None]
  - HEADACHE [None]
  - HYPERTENSION [None]
  - RASH [None]
  - RETINOPATHY HAEMORRHAGIC [None]
